FAERS Safety Report 12130437 (Version 1)
Quarter: 2016Q1

REPORT INFORMATION
  Report Type: Spontaneous
  Country: US (occurrence: US)
  Receive Date: 20160301
  Receipt Date: 20160301
  Transmission Date: 20160526
  Serious: No
  Sender: FDA-Public Use
  Company Number: US-ACORDA-ACO_22746_2010

PATIENT
  Age: 60 Year
  Sex: Female
  Weight: 51 kg

DRUGS (7)
  1. TYSABRI [Concomitant]
     Active Substance: NATALIZUMAB
     Indication: MULTIPLE SCLEROSIS
     Dosage: INFUSION EVERY FOUR WEEKS
  2. TOPROL XL [Concomitant]
     Active Substance: METOPROLOL SUCCINATE
     Indication: HYPERTENSION
     Dosage: 50MG ONCE DAILY
  3. OXYTROL [Concomitant]
     Active Substance: OXYBUTYNIN
     Indication: BLADDER DISORDER
     Dosage: 2 PATCHES 2/WEEK
  4. FELODIPINE. [Concomitant]
     Active Substance: FELODIPINE
     Indication: HYPERTENSION
     Dosage: 10MG ONCE DAILY
  5. BACLOFEN. [Concomitant]
     Active Substance: BACLOFEN
     Indication: MUSCLE SPASTICITY
     Dosage: 20MG DAILY
  6. LISINOPRIL. [Concomitant]
     Active Substance: LISINOPRIL
     Indication: HYPERTENSION
     Dosage: 40MG ONCE DAILY
  7. AMPYRA [Suspect]
     Active Substance: DALFAMPRIDINE
     Indication: MULTIPLE SCLEROSIS
     Dosage: 10 MG, ONCE
     Route: 048
     Dates: start: 20100608, end: 20100608

REACTIONS (4)
  - Limb discomfort [Unknown]
  - Dizziness [Not Recovered/Not Resolved]
  - Injection site pain [Unknown]
  - Depressed mood [Unknown]

NARRATIVE: CASE EVENT DATE: 20100608
